FAERS Safety Report 5940443-8 (Version None)
Quarter: 2008Q4

REPORT INFORMATION
  Report Type: 
  Country: None (occurrence: None)
  Receive Date: 20081104
  Receipt Date: 20081028
  Transmission Date: 20090506
  Serious: Yes (Hospitalization)
  Sender: FDA-Public Use
  Company Number: US-GENENTECH-267966

PATIENT
  Sex: Female
  Weight: 61.678 kg

DRUGS (3)
  1. RITUXAN [Suspect]
     Indication: LYMPHOMA
     Dosage: 50 MG/M2, UNK
     Route: 042
     Dates: start: 20080908, end: 20080910
  2. RITUXAN [Suspect]
     Dosage: 325 MG/M2, UNK
     Route: 042
     Dates: start: 20080910
  3. FLUDARABINE PHOSPHATE [Suspect]
     Indication: CHRONIC LYMPHOCYTIC LEUKAEMIA
     Dosage: UNK
     Dates: start: 20080908

REACTIONS (2)
  - CONVULSION [None]
  - LOSS OF CONSCIOUSNESS [None]
